FAERS Safety Report 18964920 (Version 1)
Quarter: 2021Q1

REPORT INFORMATION
  Report Type: Spontaneous
  Country: US (occurrence: US)
  Receive Date: 20210303
  Receipt Date: 20210303
  Transmission Date: 20210420
  Serious: No
  Sender: FDA-Public Use
  Company Number: US-AMNEAL PHARMACEUTICALS-2020-AMRX-01384

PATIENT
  Age: 72 Year
  Sex: Female

DRUGS (2)
  1. RYTARY [Suspect]
     Active Substance: CARBIDOPA\LEVODOPA
     Dosage: 61.25?245MG, 1 CAPSULE 3 /DAY
     Route: 048
     Dates: start: 20200415, end: 2020
  2. RYTARY [Suspect]
     Active Substance: CARBIDOPA\LEVODOPA
     Indication: PARKINSON^S DISEASE
     Dosage: 48.75?195MG, 1 CAPSULE 3 /DAY
     Route: 048
     Dates: start: 20200415, end: 2020

REACTIONS (6)
  - Bruxism [Unknown]
  - Stomatitis [Unknown]
  - Abdominal discomfort [Unknown]
  - Mania [Unknown]
  - Diarrhoea [Unknown]
  - Tongue injury [Unknown]

NARRATIVE: CASE EVENT DATE: 20200423
